FAERS Safety Report 7875432-X (Version None)
Quarter: 2011Q4

REPORT INFORMATION
  Report Type: 
  Country: None (occurrence: None)
  Receive Date: 20111031
  Receipt Date: 20111019
  Transmission Date: 20120403
  Serious: Yes (Hospitalization, Other)
  Sender: FDA-Public Use
  Company Number: PHFR2011IE03376

PATIENT
  Sex: Female

DRUGS (5)
  1. CLOZARIL [Suspect]
     Indication: SCHIZOPHRENIA
     Dosage: 325 MG/DAY
     Route: 048
     Dates: start: 19990908
  2. OMEPRAZOLE [Concomitant]
     Indication: REFLUX GASTRITIS
     Dosage: 20 MG/DAY
     Route: 048
  3. VALPROATE SODIUM [Concomitant]
     Indication: CONVULSION
     Dosage: 2000 MG/DAY
     Route: 048
  4. VENLAFAXINE [Concomitant]
     Indication: DEPRESSION
     Dosage: 375 MG/DAY
     Route: 048
  5. MIRTAZAPINE [Concomitant]
     Route: 065

REACTIONS (10)
  - LOWER RESPIRATORY TRACT INFECTION [None]
  - PLATELET COUNT DECREASED [None]
  - PLATELET COUNT ABNORMAL [None]
  - LUNG CONSOLIDATION [None]
  - SCHIZOPHRENIA [None]
  - GENERAL PHYSICAL CONDITION ABNORMAL [None]
  - ASTHMA [None]
  - FULL BLOOD COUNT ABNORMAL [None]
  - PNEUMONIA PNEUMOCOCCAL [None]
  - NEUTROPENIA [None]
